FAERS Safety Report 8327835-7 (Version None)
Quarter: 2012Q2

REPORT INFORMATION
  Report Type: 
  Country: None (occurrence: None)
  Receive Date: 20120502
  Receipt Date: 20120418
  Transmission Date: 20120825
  Serious: Yes (Hospitalization, Other)
  Sender: FDA-Public Use
  Company Number: CN-JNJFOC-20111211417

PATIENT
  Sex: Male
  Weight: 60 kg

DRUGS (1)
  1. SPORANOX [Suspect]
     Indication: ONYCHOMYCOSIS
     Route: 048
     Dates: start: 20111216, end: 20111222

REACTIONS (3)
  - ERECTILE DYSFUNCTION [None]
  - HAEMATOCHEZIA [None]
  - HERPES VIRUS INFECTION [None]
